FAERS Safety Report 8394068-8 (Version None)
Quarter: 2012Q2

REPORT INFORMATION
  Report Type: 
  Country: None (occurrence: None)
  Receive Date: 20120530
  Receipt Date: 20120521
  Transmission Date: 20120825
  Serious: No
  Sender: FDA-Public Use
  Company Number: US-PFIZER INC-2012122529

PATIENT
  Sex: Male
  Weight: 79.4 kg

DRUGS (5)
  1. PHENYTOIN SODIUM [Suspect]
     Dosage: UNK
     Dates: start: 20120401
  2. DILANTIN [Suspect]
     Indication: CONVULSION
     Dosage: (THREE CAPSULES OF 100MG IN THE MORNING AND TWO CAPSULE OF 100MG IN THE EVENING)
     Route: 048
     Dates: end: 20120101
  3. DILANTIN [Suspect]
     Dosage: (THREE CAPSULES OF 100MG IN THE MORNING AND TWO CAPSULES OF 100MG IN THE EVENING)
     Route: 048
     Dates: start: 20120501
  4. DILANTIN [Suspect]
     Dosage: (THREE CAPSULES OF 100MG IN THE MORNING AND TWO CAPSULE OF 100MG IN THE EVENING)
     Route: 048
     Dates: start: 20120401
  5. PRIMIDONE [Concomitant]
     Indication: CONVULSION
     Dosage: 250 MG, 2X/DAY

REACTIONS (7)
  - CONSTIPATION [None]
  - SWOLLEN TONGUE [None]
  - DRUG INEFFECTIVE [None]
  - SOMNOLENCE [None]
  - FEELING ABNORMAL [None]
  - DYSARTHRIA [None]
  - VISION BLURRED [None]
